FAERS Safety Report 5282355-1 (Version None)
Quarter: 2007Q1

REPORT INFORMATION
  Report Type: 
  Country: None (occurrence: None)
  Receive Date: 20070326
  Receipt Date: 20070319
  Transmission Date: 20070707
  Serious: Yes (Death)
  Sender: FDA-Public Use
  Company Number: DIB20040001

PATIENT
  Age: 20 Year
  Sex: Female
  Weight: 39 kg

DRUGS (2)
  1. PHENOXYBENZAMINE HCL [Suspect]
     Indication: NEUROGENIC BLADDER
     Dosage: SEE IMAGE
     Dates: start: 19830101, end: 19930101
  2. PHENOXYBENZAMINE HCL [Suspect]
     Indication: NEUROGENIC BLADDER
     Dosage: SEE IMAGE
     Dates: start: 19930101, end: 19950101

REACTIONS (3)
  - METASTASES TO LUNG [None]
  - MULTI-ORGAN FAILURE [None]
  - OESOPHAGEAL SQUAMOUS CELL CARCINOMA METASTATIC [None]
